FAERS Safety Report 10087994 (Version 1)
Quarter: 2014Q2

REPORT INFORMATION
  Report Type: Report from Study
  Country: DE (occurrence: DE)
  Receive Date: 20140419
  Receipt Date: 20140419
  Transmission Date: 20141212
  Serious: Yes (Other)
  Sender: FDA-Public Use
  Company Number: DE-US-EMD SERONO, INC.-7282990

PATIENT
  Age: 50 Year
  Sex: Female

DRUGS (1)
  1. REBIF [Suspect]
     Indication: MULTIPLE SCLEROSIS
     Route: 058
     Dates: start: 200002

REACTIONS (4)
  - Necrosis [Not Recovered/Not Resolved]
  - Induration [Not Recovered/Not Resolved]
  - Chills [Not Recovered/Not Resolved]
  - Skin reaction [Not Recovered/Not Resolved]
